FAERS Safety Report 6661179-4 (Version None)
Quarter: 2010Q1

REPORT INFORMATION
  Report Type: 
  Country: None (occurrence: None)
  Receive Date: 20100331
  Receipt Date: 20100323
  Transmission Date: 20100710
  Serious: Yes (Disabling)
  Sender: FDA-Public Use
  Company Number: B0606918A

PATIENT
  Sex: Female
  Weight: 62 kg

DRUGS (2)
  1. LAMICTAL CD [Suspect]
     Indication: BIPOLAR DISORDER
     Route: 048
     Dates: start: 20091020
  2. INTRAUTERINE DEVICE [Concomitant]
     Indication: CONTRACEPTION
     Dates: start: 20090101

REACTIONS (1)
  - AMENORRHOEA [None]
